FAERS Safety Report 4809382-X (Version None)
Quarter: 2005Q4

REPORT INFORMATION
  Report Type: 
  Country: None (occurrence: None)
  Receive Date: 20051018
  Receipt Date: 20051005
  Transmission Date: 20060501
  Serious: Yes (Other)
  Sender: FDA-Public Use
  Company Number: 200511858BBE

PATIENT
  Age: 83 Year
  Sex: Female

DRUGS (6)
  1. GAMUNEX [Suspect]
     Dosage: 30 G, TOTAL DAILY, INTRAVENOUS
     Route: 042
  2. ATIVAN [Concomitant]
  3. DILAUDID [Concomitant]
  4. EMPRACET [Concomitant]
  5. HCTZ (HYDROCHLOROTHIAZIDE) [Concomitant]
  6. PINDOLOL [Concomitant]

REACTIONS (2)
  - CONDITION AGGRAVATED [None]
  - ENCEPHALOPATHY [None]
